FAERS Safety Report 4949302-0 (Version None)
Quarter: 2006Q1

REPORT INFORMATION
  Report Type: 
  Country: None (occurrence: None)
  Receive Date: 20060315
  Receipt Date: 20060228
  Transmission Date: 20060701
  Serious: Yes (Other)
  Sender: FDA-Public Use
  Company Number: 2005BI016189

PATIENT
  Age: 52 Year
  Sex: Female

DRUGS (7)
  1. AVONEX [Suspect]
     Indication: MULTIPLE SCLEROSIS
     Dosage: 30 UG;QW;IM
     Route: 030
     Dates: start: 20020101
  2. PROZAC [Concomitant]
  3. NEURONTIN [Concomitant]
  4. BACLOFEN [Concomitant]
  5. WELLBUTRIN [Concomitant]
  6. CLONAZEPAM [Concomitant]
  7. MODAFINIL [Concomitant]

REACTIONS (5)
  - ALOPECIA [None]
  - BREAST CANCER IN SITU [None]
  - NAUSEA [None]
  - OESTROGEN RECEPTOR ASSAY POSITIVE [None]
  - VOMITING [None]
